FAERS Safety Report 7275961-6 (Version None)
Quarter: 2011Q1

REPORT INFORMATION
  Report Type: 
  Country: None (occurrence: None)
  Receive Date: 20110204
  Receipt Date: 20110202
  Transmission Date: 20110831
  Serious: Yes (Death)
  Sender: FDA-Public Use
  Company Number: A0911442A

PATIENT
  Age: 48 Year
  Sex: Male

DRUGS (2)
  1. COREG CR [Suspect]
     Indication: CARDIAC FAILURE CHRONIC
     Dosage: 80MG PER DAY
     Route: 048
     Dates: start: 20080501
  2. CONCURRENT MEDICATIONS [Concomitant]

REACTIONS (1)
  - DEATH [None]
